FAERS Safety Report 6975151-8 (Version None)
Quarter: 2010Q3

REPORT INFORMATION
  Report Type: 
  Country: None (occurrence: None)
  Receive Date: 20100910
  Receipt Date: 20090205
  Transmission Date: 20110219
  Serious: No
  Sender: FDA-Public Use
  Company Number: US-WYE-H08115409

PATIENT
  Sex: Male

DRUGS (11)
  1. PRISTIQ [Suspect]
     Indication: DEPRESSION
     Route: 048
     Dates: start: 20081201
  2. ALTACE [Concomitant]
  3. CALCIUM [Concomitant]
  4. PANTOPRAZOLE [Concomitant]
  5. FISH OIL [Concomitant]
  6. GLUCOTROL [Concomitant]
  7. TRIAMTERENE AND HYDROCHLOROTHIAZIDE [Concomitant]
  8. ALLOPURINOL [Concomitant]
  9. TRICOR [Concomitant]
  10. ACETYLSALICYLIC ACID [Concomitant]
  11. ACTOS [Concomitant]

REACTIONS (3)
  - CONDITION AGGRAVATED [None]
  - DIABETES MELLITUS [None]
  - LIVER FUNCTION TEST ABNORMAL [None]
